FAERS Safety Report 8269095-1 (Version None)
Quarter: 2012Q2

REPORT INFORMATION
  Report Type: 
  Country: None (occurrence: None)
  Receive Date: 20120409
  Receipt Date: 20120402
  Transmission Date: 20120825
  Serious: Yes (Hospitalization, Other)
  Sender: FDA-Public Use
  Company Number: US-TEVA-331638USA

PATIENT
  Age: 41 Year
  Sex: Male

DRUGS (8)
  1. NADOLOL [Suspect]
     Indication: SYNCOPE
     Route: 065
  2. FLUOXETINE [Concomitant]
     Dosage: 40MG DAILY
     Route: 065
  3. DULOXETINE HYDROCHLORIDE [Concomitant]
     Dosage: 60MG DAILY
     Route: 065
  4. PREGABALIN [Concomitant]
     Route: 065
  5. METAXALONE [Concomitant]
     Dosage: 800MG PRN
     Route: 065
  6. LEVOTHYROXINE SODIUM [Concomitant]
     Dosage: 100MG DAILY
     Route: 065
  7. DOXYCYCLINE [Concomitant]
     Dosage: 100MG DAILY
     Route: 065
  8. DOBUTAMINE HCL [Suspect]
     Indication: STRESS ECHOCARDIOGRAM
     Route: 065

REACTIONS (6)
  - CHEST PAIN [None]
  - LEFT VENTRICULAR DYSFUNCTION [None]
  - ELECTROCARDIOGRAM ST SEGMENT DEPRESSION [None]
  - VENTRICULAR EXTRASYSTOLES [None]
  - DYSPNOEA [None]
  - HEART RATE INCREASED [None]
